FAERS Safety Report 20917909 (Version 1)
Quarter: 2022Q2

REPORT INFORMATION
  Report Type: Spontaneous
  Country: DE (occurrence: DE)
  Receive Date: 20220606
  Receipt Date: 20220606
  Transmission Date: 20220720
  Serious: Yes (Death, Other)
  Sender: FDA-Public Use
  Company Number: DE-PADAGIS-2022PAD00119

PATIENT

DRUGS (5)
  1. DOXORUBICIN [Suspect]
     Active Substance: DOXORUBICIN
     Indication: Marginal zone lymphoma
     Dosage: (EVERY 3 WEEKS FOR 6 CYCLES)
     Route: 065
  2. OBINUTUZUMAB [Suspect]
     Active Substance: OBINUTUZUMAB
     Indication: Marginal zone lymphoma
     Dosage: 1000 MG ON DAY [D]1,8 AND 15 OF CYCLE 1 AND D1 OF SUBSEQUENT CYCLES
     Route: 065
  3. CYCLOPHOSPHAMIDE [Suspect]
     Active Substance: CYCLOPHOSPHAMIDE
     Indication: Marginal zone lymphoma
     Dosage: (UNK, EVERY 3 WK FOR 6 CYCLES)
     Route: 065
  4. VINCRISTINE [Suspect]
     Active Substance: VINCRISTINE
     Indication: Marginal zone lymphoma
     Dosage: (UNK, EVERY 3 WK FOR 6 CYCLES)
     Route: 065
  5. PREDNISONE [Suspect]
     Active Substance: PREDNISONE
     Indication: Marginal zone lymphoma
     Dosage: (UNK, EVERY 3 WEEKS FOR 6 CYCLES)
     Route: 065

REACTIONS (2)
  - Pneumonia fungal [Fatal]
  - Product use in unapproved indication [Unknown]
